FAERS Safety Report 8823967 (Version 1)
Quarter: 2012Q4

REPORT INFORMATION
  Report Type: 
  Country: US (occurrence: US)
  Receive Date: 20121003
  Receipt Date: 20121003
  Transmission Date: 20130627
  Serious: Yes (Hospitalization)
  Sender: FDA-Public Use
  Company Number: US-B.I. PHARMACEUTICALS,INC./RIDGEFIELD-2012-BP-23533BP

PATIENT
  Sex: Female

DRUGS (9)
  1. TRADJENTA [Suspect]
     Indication: TYPE 2 DIABETES MELLITUS
     Dosage: 5 mg
     Route: 048
     Dates: start: 20120911, end: 20120913
  2. LEVEMIR [Concomitant]
  3. NOVOLOG [Concomitant]
  4. ISOSORBIDE MONONITRATE [Concomitant]
  5. LIPITOR [Concomitant]
  6. LASIX [Concomitant]
  7. POTASSIUM CHLORIDE [Concomitant]
  8. PROTONIX [Concomitant]
  9. NORVASC [Concomitant]

REACTIONS (2)
  - Cholelithiasis [Unknown]
  - Pancreatitis [Unknown]
